FAERS Safety Report 6600222-5 (Version None)
Quarter: 2010Q1

REPORT INFORMATION
  Report Type: 
  Country: None (occurrence: None)
  Receive Date: 20100217
  Receipt Date: 20100201
  Transmission Date: 20100710
  Serious: Yes (Hospitalization)
  Sender: FDA-Public Use
  Company Number: 005511

PATIENT
  Sex: Male

DRUGS (6)
  1. VIMPAT [Suspect]
     Indication: EPILEPSY
     Dosage: 150 ORAL
     Route: 048
     Dates: start: 20091217, end: 20100123
  2. NAFTILUX (NAFTILUX) [Suspect]
     Dosage: 2 / DAY
     Dates: start: 20100109, end: 20100122
  3. TRILEPTAL [Concomitant]
  4. IRBESARTAN + HYDROCHLOROTHIAZIDE [Concomitant]
  5. CRESTOR [Concomitant]
  6. KEPPRA [Concomitant]

REACTIONS (2)
  - CYTOLYTIC HEPATITIS [None]
  - HEPATITIS A ANTIBODY POSITIVE [None]
